FAERS Safety Report 24370178 (Version 1)
Quarter: 2024Q3

REPORT INFORMATION
  Report Type: Report from Study
  Country: US (occurrence: US)
  Receive Date: 20240927
  Receipt Date: 20240927
  Transmission Date: 20241017
  Serious: No
  Sender: ROCHE
  Company Number: US-ROCHE-3558328

PATIENT
  Age: 65 Year
  Sex: Male

DRUGS (14)
  1. LUCENTIS [Suspect]
     Active Substance: RANIBIZUMAB
     Indication: Retinal vein occlusion
     Dosage: 0.5 MG/0.05 ML
     Route: 050
  2. LUCENTIS [Suspect]
     Active Substance: RANIBIZUMAB
     Indication: Macular oedema
  3. LUCENTIS [Suspect]
     Active Substance: RANIBIZUMAB
     Indication: Retinopathy hypertensive
  4. LUCENTIS [Suspect]
     Active Substance: RANIBIZUMAB
     Indication: Diabetic retinopathy
  5. AVASTIN [Suspect]
     Active Substance: BEVACIZUMAB
     Indication: Macular oedema
     Route: 065
  6. PANTOPRAZOLE [Concomitant]
     Active Substance: PANTOPRAZOLE
  7. ESCITALOPRAM [Concomitant]
     Active Substance: ESCITALOPRAM OXALATE
  8. ALLOPURINOL [Concomitant]
     Active Substance: ALLOPURINOL
  9. LOSARTAN [Concomitant]
     Active Substance: LOSARTAN\LOSARTAN POTASSIUM
  10. LOVASTATIN [Concomitant]
     Active Substance: LOVASTATIN
  11. GLIPIZIDE [Concomitant]
     Active Substance: GLIPIZIDE
  12. METFORMIN [Concomitant]
     Active Substance: METFORMIN HYDROCHLORIDE
  13. FENOFIBRATE [Concomitant]
     Active Substance: FENOFIBRATE
  14. TRESIBA [Concomitant]
     Active Substance: INSULIN DEGLUDEC

REACTIONS (3)
  - Off label use [Unknown]
  - Rhinorrhoea [Unknown]
  - Arthralgia [Unknown]
